FAERS Safety Report 26119705 (Version 1)
Quarter: 2025Q4

REPORT INFORMATION
  Report Type: Spontaneous
  Country: EU (occurrence: EU)
  Receive Date: 20251204
  Receipt Date: 20251204
  Transmission Date: 20260118
  Serious: Yes (Death, Other)
  Sender: AMGEN
  Company Number: EU-AMGEN-DEUSP2025235976

PATIENT

DRUGS (1)
  1. ECULIZUMAB [Suspect]
     Active Substance: ECULIZUMAB
     Indication: Myasthenia gravis
     Dosage: UNK
     Route: 065

REACTIONS (10)
  - COVID-19 [Fatal]
  - Myasthenia gravis [Fatal]
  - Cerebrovascular accident [Fatal]
  - Myasthenia gravis crisis [Unknown]
  - Ocular myasthenia [Unknown]
  - Thymic carcinoma [Unknown]
  - Thymoma [Unknown]
  - Post procedural complication [Unknown]
  - Thymus enlargement [Unknown]
  - Thymic cyst [Unknown]
